FAERS Safety Report 8001149-7 (Version None)
Quarter: 2011Q4

REPORT INFORMATION
  Report Type: 
  Country: None (occurrence: None)
  Receive Date: 20111222
  Receipt Date: 20111206
  Transmission Date: 20120403
  Serious: Yes (Other)
  Sender: FDA-Public Use
  Company Number: US-SANOFI-AVENTIS-2010SA012390

PATIENT
  Age: 65 Year
  Sex: Female

DRUGS (2)
  1. ALLEGRA-D 12 HOUR [Suspect]
     Dosage: SOMETIMES TAKES IT QD AND SOMETIMES BID
     Route: 048
  2. ALDACTONE [Concomitant]
     Indication: BLOOD PRESSURE

REACTIONS (9)
  - CATARACT [None]
  - EAR DISORDER [None]
  - GLAUCOMA [None]
  - MEDICATION RESIDUE [None]
  - DIZZINESS [None]
  - SLEEP DISORDER [None]
  - RETINAL DETACHMENT [None]
  - THIRST [None]
  - VITREOUS DETACHMENT [None]
